FAERS Safety Report 7054201-7 (Version None)
Quarter: 2010Q4

REPORT INFORMATION
  Report Type: 
  Country: None (occurrence: None)
  Receive Date: 20101015
  Receipt Date: 20101001
  Transmission Date: 20110411
  Serious: Yes (Life-Threatening, Hospitalization)
  Sender: FDA-Public Use
  Company Number: 1000016673

PATIENT
  Age: 22 Year
  Sex: Female

DRUGS (2)
  1. LEXAPRO [Suspect]
     Dates: start: 20080101
  2. LAMOTRIGINE [Concomitant]

REACTIONS (2)
  - CARDIO-RESPIRATORY ARREST [None]
  - COMA [None]
